FAERS Safety Report 13053972 (Version 1)
Quarter: 2016Q4

REPORT INFORMATION
  Report Type: Spontaneous
  Country: US (occurrence: US)
  Receive Date: 20161221
  Receipt Date: 20161221
  Transmission Date: 20170207
  Serious: Yes (Disabling, Other)
  Sender: FDA-Public Use
  Company Number: None

PATIENT
  Age: 31 Year
  Sex: Male
  Weight: 81 kg

DRUGS (3)
  1. CEPHALEXIN. [Suspect]
     Active Substance: CEPHALEXIN
     Indication: RHINOPLASTY
     Dosage: ?          QUANTITY:1 CAPSULE(S);?
     Route: 048
     Dates: start: 20160805, end: 20160826
  2. VITAMINS [Concomitant]
     Active Substance: VITAMINS
  3. RAW PROTEIN [Concomitant]

REACTIONS (2)
  - Seizure [None]
  - Slow response to stimuli [None]

NARRATIVE: CASE EVENT DATE: 20160823
